FAERS Safety Report 5014714-6 (Version None)
Quarter: 2006Q2

REPORT INFORMATION
  Report Type: 
  Country: None (occurrence: None)
  Receive Date: 20060531
  Receipt Date: 20060524
  Transmission Date: 20061013
  Serious: Yes (Hospitalization, Other)
  Sender: FDA-Public Use
  Company Number: US-GLAXOSMITHKLINE-A0606788A

PATIENT
  Age: 59 Year
  Sex: Female

DRUGS (6)
  1. ADVAIR DISKUS 100/50 [Suspect]
     Indication: ASTHMA
     Dosage: 1PUFF TWICE PER DAY
     Route: 055
     Dates: start: 20050715, end: 20060101
  2. SEREVENT [Suspect]
     Indication: ASTHMA
     Route: 055
     Dates: start: 20060301, end: 20060301
  3. INSULIN [Concomitant]
  4. PLAVIX [Concomitant]
  5. POTASSIUM [Concomitant]
  6. LASIX [Concomitant]

REACTIONS (7)
  - ASTHMA [None]
  - CARDIOMEGALY [None]
  - DYSPNOEA [None]
  - HAEMOPTYSIS [None]
  - LUNG DISORDER [None]
  - OXYGEN SATURATION DECREASED [None]
  - PRODUCTIVE COUGH [None]
